FAERS Safety Report 18533931 (Version 1)
Quarter: 2020Q4

REPORT INFORMATION
  Report Type: Spontaneous
  Country: US (occurrence: US)
  Receive Date: 20201123
  Receipt Date: 20201123
  Transmission Date: 20210114
  Serious: No
  Sender: FDA-Public Use
  Company Number: US-BRACCO-2020US01342

PATIENT
  Age: 54 Year
  Sex: Male

DRUGS (1)
  1. LUMASON [Suspect]
     Active Substance: SULFUR HEXAFLUORIDE
     Indication: CARDIAC STRESS TEST
     Dosage: 1.5 ML, SINGLE
     Route: 042

REACTIONS (4)
  - Hyperhidrosis [Recovering/Resolving]
  - Abdominal discomfort [Recovering/Resolving]
  - Feeling hot [Recovering/Resolving]
  - Tachycardia [Recovering/Resolving]
